FAERS Safety Report 19073108 (Version 1)
Quarter: 2021Q1

REPORT INFORMATION
  Report Type: Report from Study
  Country: US (occurrence: US)
  Receive Date: 20210330
  Receipt Date: 20210330
  Transmission Date: 20210420
  Serious: Yes (Other)
  Sender: FDA-Public Use
  Company Number: US-SHIRE-US201733789

PATIENT
  Sex: Female

DRUGS (1)
  1. CUVITRU [Suspect]
     Active Substance: HUMAN IMMUNOGLOBULIN G
     Indication: PRIMARY IMMUNODEFICIENCY SYNDROME
     Dosage: 10 GRAM, 1/WEEK
     Route: 065

REACTIONS (6)
  - Nasal valve collapse [Unknown]
  - Family stress [Unknown]
  - Rheumatoid arthritis [Unknown]
  - Nasal turbinate hypertrophy [Unknown]
  - COVID-19 [Recovered/Resolved]
  - Nasal septum deviation [Unknown]
